FAERS Safety Report 4862750-2 (Version None)
Quarter: 2005Q4

REPORT INFORMATION
  Report Type: 
  Country: None (occurrence: None)
  Receive Date: 20051221
  Receipt Date: 20051209
  Transmission Date: 20060501
  Serious: Yes (Other)
  Sender: FDA-Public Use
  Company Number: CA-BRISTOL-MYERS SQUIBB COMPANY-13219688

PATIENT
  Age: 76 Year
  Sex: Female

DRUGS (9)
  1. TEQUIN [Suspect]
     Route: 048
  2. CLOPIDOGREL BISULFATE [Concomitant]
  3. DOCUSATE [Concomitant]
  4. HYDROXYCHLOROQUINE SULFATE [Concomitant]
  5. METHADONE [Concomitant]
  6. METHYLPHENIDATE HCL [Concomitant]
  7. MIRTAZAPINE [Concomitant]
  8. OMEPRAZOLE [Concomitant]
  9. SENOKOT [Concomitant]

REACTIONS (1)
  - HYPOGLYCAEMIA [None]
